FAERS Safety Report 23138349 (Version 1)
Quarter: 2023Q4

REPORT INFORMATION
  Report Type: Spontaneous
  Country: US (occurrence: US)
  Receive Date: 20231102
  Receipt Date: 20231102
  Transmission Date: 20240110
  Serious: Yes (Hospitalization)
  Sender: FDA-Public Use
  Company Number: US-ROCHE-3190919

PATIENT
  Age: 61 Year
  Sex: Female

DRUGS (4)
  1. CAPECITABINE [Suspect]
     Active Substance: CAPECITABINE
     Indication: Breast cancer metastatic
     Dosage: TAKE 3 TABLET(S) BY MOUTH (1500 MG) TWICE A DAY FOR 14 DAYS ON AND 7 DAYS OFF
     Route: 048
  2. CAPECITABINE [Suspect]
     Active Substance: CAPECITABINE
     Indication: Senile osteoporosis
     Dosage: TAKE 3 TABLET(S) BY MOUTH (1500 MG) TWICE A DAY FOR 14 DAYS ON AND 7 DAYS OFF
     Route: 048
  3. CAPECITABINE [Suspect]
     Active Substance: CAPECITABINE
     Indication: Osteoporosis
     Dosage: TAKE 3 TABLET(S) BY MOUTH (1500 MG) TWICE A DAY FOR 14 DAYS ON AND 7 DAYS OFF
     Route: 048
  4. CAPECITABINE [Suspect]
     Active Substance: CAPECITABINE
     Indication: Breast cancer female
     Dosage: TAKE 3 TABLET(S) BY MOUTH (1500 MG) TWICE A DAY FOR 14 DAYS ON AND 7 DAYS OFF
     Route: 048

REACTIONS (8)
  - Road traffic accident [Unknown]
  - Rib fracture [Unknown]
  - Contusion [Unknown]
  - Cervical vertebral fracture [Unknown]
  - Lower limb fracture [Unknown]
  - Balance disorder [Unknown]
  - Patella fracture [Unknown]
  - Product use in unapproved indication [Unknown]
